FAERS Safety Report 12990442 (Version 2)
Quarter: 2017Q1

REPORT INFORMATION
  Report Type: Spontaneous
  Country: US (occurrence: US)
  Receive Date: 20161201
  Receipt Date: 20170120
  Transmission Date: 20170428
  Serious: Yes (Other)
  Sender: FDA-Public Use
  Company Number: US-SA-2016SA218283

PATIENT
  Age: 53 Year
  Sex: Female

DRUGS (1)
  1. AUBAGIO [Suspect]
     Active Substance: TERIFLUNOMIDE
     Indication: MULTIPLE SCLEROSIS
     Route: 048

REACTIONS (7)
  - Gastroenteritis salmonella [Unknown]
  - Polycystic ovaries [Unknown]
  - Fall [Unknown]
  - Hiccups [Unknown]
  - Depression [Unknown]
  - Fungal infection [Recovered/Resolved]
  - Hepatic neoplasm [Unknown]
